FAERS Safety Report 4401098-7 (Version None)
Quarter: 2004Q3

REPORT INFORMATION
  Report Type: 
  Country: None (occurrence: None)
  Receive Date: 20040907
  Receipt Date: 20031030
  Transmission Date: 20050211
  Serious: No
  Sender: FDA-Public Use
  Company Number: US-BRISTOL-MYERS SQUIBB COMPANY-12423067

PATIENT
  Age: 65 Year
  Sex: Male
  Weight: 100 kg

DRUGS (8)
  1. COUMADIN [Suspect]
     Indication: BLOOD VISCOSITY INCREASED
     Dosage: 1992 INITIATED AND SUBSEQUENTLY STOPPED DURING OCTOBER 1992. RESTARTED SEPTEMBER 2003
     Route: 048
     Dates: start: 19920101
  2. COUMADIN [Suspect]
     Indication: PROPHYLAXIS
     Dosage: 1992 INITIATED AND SUBSEQUENTLY STOPPED DURING OCTOBER 1992. RESTARTED SEPTEMBER 2003
     Route: 048
     Dates: start: 19920101
  3. PRAVACHOL [Concomitant]
  4. ACTOS [Concomitant]
  5. GLUCOTROL [Concomitant]
  6. TOPROL-XL [Concomitant]
  7. NORVASC [Concomitant]
  8. ASPIRIN [Concomitant]

REACTIONS (4)
  - HAEMORRHAGE [None]
  - HYPOAESTHESIA [None]
  - PRURITUS [None]
  - VEIN DISORDER [None]
